FAERS Safety Report 16923671 (Version 3)
Quarter: 2019Q4

REPORT INFORMATION
  Report Type: Spontaneous
  Country: ES (occurrence: ES)
  Receive Date: 20191016
  Receipt Date: 20191119
  Transmission Date: 20200122
  Serious: Yes (Death, Life-Threatening, Hospitalization, Other)
  Sender: FDA-Public Use
  Company Number: ES-AUROBINDO-AUR-APL-2019-067197

PATIENT
  Age: 38 Year
  Sex: Male

DRUGS (5)
  1. PARACETAMOL [Suspect]
     Active Substance: ACETAMINOPHEN
     Indication: PYREXIA
     Dosage: 1 GRAM (STARTING FROM THE DAY OF ONSET OF SYMPTOMS)
     Route: 065
  2. CEFTRIAXONE. [Concomitant]
     Active Substance: CEFTRIAXONE
     Indication: PRODUCT USED FOR UNKNOWN INDICATION
     Dosage: UNK
     Route: 065
  3. IBUPROFEN. [Suspect]
     Active Substance: IBUPROFEN
     Indication: PYREXIA
     Dosage: 600 MILLIGRAM, 3 TIMES A DAY (STARTING FROM THE DAY OF ONSET OF SYMPTOMS)
     Route: 065
  4. PARACETAMOL [Suspect]
     Active Substance: ACETAMINOPHEN
     Indication: MYALGIA
  5. PIPERACILLIN AND TAZOBACTAM [Concomitant]
     Active Substance: PIPERACILLIN SODIUM\TAZOBACTAM SODIUM
     Indication: PRODUCT USED FOR UNKNOWN INDICATION
     Dosage: UNK
     Route: 065

REACTIONS (18)
  - Atrial fibrillation [Recovered/Resolved]
  - Seizure [Fatal]
  - Hepatic encephalopathy [Fatal]
  - Renal failure [Fatal]
  - Myoclonus [Fatal]
  - Haematoma [Fatal]
  - Depressed level of consciousness [Fatal]
  - Anaemia [Fatal]
  - Coagulopathy [Fatal]
  - Toxicity to various agents [Unknown]
  - Weil^s disease [Fatal]
  - Hypotension [Fatal]
  - Asterixis [Fatal]
  - Petechiae [Fatal]
  - Condition aggravated [Fatal]
  - Mouth haemorrhage [Fatal]
  - Thrombocytopenia [Fatal]
  - Hyperbilirubinaemia [Fatal]
